FAERS Safety Report 6188999-7 (Version None)
Quarter: 2009Q2

REPORT INFORMATION
  Report Type: 
  Country: None (occurrence: None)
  Receive Date: 20090512
  Receipt Date: 20090512
  Transmission Date: 20091009
  Serious: No
  Sender: FDA-Public Use
  Company Number: None

PATIENT
  Age: 30 Year
  Sex: Male
  Weight: 79.8 kg

DRUGS (1)
  1. BENZOCAINE SPRAY [Suspect]
     Indication: ENDOTRACHEAL INTUBATION
     Dosage: SPRAY X1 TOPICAL
     Route: 061
     Dates: start: 20090219

REACTIONS (1)
  - BLOOD METHAEMOGLOBIN PRESENT [None]
